FAERS Safety Report 4969834-9 (Version None)
Quarter: 2006Q2

REPORT INFORMATION
  Report Type: 
  Country: None (occurrence: None)
  Receive Date: 20060411
  Receipt Date: 20060220
  Transmission Date: 20061013
  Serious: Yes (Hospitalization, Other)
  Sender: FDA-Public Use
  Company Number: US-MERCK-0602USA04855

PATIENT
  Age: 51 Year
  Sex: Male

DRUGS (2)
  1. VYTORIN [Suspect]
     Indication: HYPERCHOLESTEROLAEMIA
     Route: 048
     Dates: start: 20050103
  2. TOPROL-XL [Concomitant]
     Route: 065

REACTIONS (1)
  - HEPATIC NEOPLASM MALIGNANT [None]
